FAERS Safety Report 6686210-1 (Version None)
Quarter: 2010Q2

REPORT INFORMATION
  Report Type: 
  Country: None (occurrence: None)
  Receive Date: 20100419
  Receipt Date: 20100407
  Transmission Date: 20101027
  Serious: Yes (Other)
  Sender: FDA-Public Use
  Company Number: MX-BAYER-201013444LA

PATIENT
  Age: 55 Year
  Sex: Male

DRUGS (2)
  1. NEXAVAR [Suspect]
     Indication: HEPATIC NEOPLASM MALIGNANT
     Route: 048
     Dates: start: 20091228
  2. NEXAVAR [Suspect]
     Route: 048
     Dates: start: 20100128

REACTIONS (2)
  - EJECTION FRACTION ABNORMAL [None]
  - HEPATIC NEOPLASM MALIGNANT [None]
